FAERS Safety Report 8996185 (Version 2)
Quarter: 2013Q1

REPORT INFORMATION
  Report Type: Spontaneous
  Country: US (occurrence: US)
  Receive Date: 20130103
  Receipt Date: 20130212
  Transmission Date: 20140127
  Serious: Yes (Hospitalization)
  Sender: FDA-Public Use
  Company Number: US-INCYTE CORPORATION-2012IN002661

PATIENT
  Sex: Male

DRUGS (3)
  1. JAKAFI [Suspect]
     Indication: MYELODYSPLASTIC SYNDROME
     Dosage: 20 MG, BID
     Route: 048
     Dates: start: 20121112
  2. JAKAFI [Suspect]
     Indication: MYELOFIBROSIS
  3. JAKAFI [Suspect]
     Indication: MYELOID METAPLASIA

REACTIONS (1)
  - Hospitalisation [Unknown]
